FAERS Safety Report 20234520 (Version 2)
Quarter: 2022Q1

REPORT INFORMATION
  Report Type: Spontaneous
  Country: CA (occurrence: CA)
  Receive Date: 20211227
  Receipt Date: 20220129
  Transmission Date: 20220423
  Serious: Yes (Hospitalization, Other)
  Sender: FDA-Public Use
  Company Number: CA-JNJFOC-20211243787

PATIENT
  Sex: Male

DRUGS (11)
  1. INVEGA SUSTENNA [Suspect]
     Active Substance: PALIPERIDONE PALMITATE
     Indication: Product used for unknown indication
     Route: 030
  2. INVEGA SUSTENNA [Suspect]
     Active Substance: PALIPERIDONE PALMITATE
  3. INVEGA SUSTENNA [Suspect]
     Active Substance: PALIPERIDONE PALMITATE
  4. RISPERDAL CONSTA [Suspect]
     Active Substance: RISPERIDONE
     Indication: Product used for unknown indication
     Route: 030
  5. RISPERDAL CONSTA [Suspect]
     Active Substance: RISPERIDONE
  6. RISPERDAL CONSTA [Suspect]
     Active Substance: RISPERIDONE
  7. RISPERDAL CONSTA [Suspect]
     Active Substance: RISPERIDONE
  8. ZYPREXA [Concomitant]
     Active Substance: OLANZAPINE
  9. FLUPENTIXOL DECANOATE [Concomitant]
     Active Substance: FLUPENTIXOL DECANOATE
  10. ABILIFY MAINTENA [Concomitant]
     Active Substance: ARIPIPRAZOLE
  11. ATIVAN [Concomitant]
     Active Substance: LORAZEPAM

REACTIONS (8)
  - Hallucination, auditory [Unknown]
  - Hospitalisation [Unknown]
  - Disability [Unknown]
  - Drug ineffective [Unknown]
  - Ejaculation disorder [Unknown]
  - Blood prolactin increased [Unknown]
  - Inappropriate schedule of product administration [Unknown]
  - Off label use [Unknown]
